FAERS Safety Report 8342690 (Version 8)
Quarter: 2014Q4

REPORT INFORMATION
  Report Type: Spontaneous
  Country: US (occurrence: US)
  Receive Date: 20120118
  Receipt Date: 20141017
  Transmission Date: 20150529
  Serious: Yes (Other)
  Sender: FDA-Public Use
  Company Number: US-ASTRAZENECA-2012SE02709

PATIENT
  Age: 67 Year
  Sex: Female

DRUGS (12)
  1. CORGARD [Concomitant]
     Active Substance: NADOLOL
  2. PENTOXIFYLLINE. [Concomitant]
     Active Substance: PENTOXIFYLLINE
  3. ATACAND [Suspect]
     Active Substance: CANDESARTAN CILEXETIL
     Indication: BLOOD PRESSURE ABNORMAL
     Route: 048
  4. MORPHINE (NON-AZ PRODUCT) [Suspect]
     Active Substance: MORPHINE
     Route: 065
  5. ALPRAZOLAM. [Concomitant]
     Active Substance: ALPRAZOLAM
  6. AMARYL [Concomitant]
     Active Substance: GLIMEPIRIDE
  7. ATACAND [Suspect]
     Active Substance: CANDESARTAN CILEXETIL
     Indication: BLOOD PRESSURE ABNORMAL
     Dosage: 8 MG, EVERY EIGHT HOURS, TAKES AT 2 PM AND 5 PM
     Route: 048
     Dates: start: 20131230
  8. LISINOPRIL. [Suspect]
     Active Substance: LISINOPRIL
     Route: 048
  9. CLONIDINE HCL [Concomitant]
     Active Substance: CLONIDINE HYDROCHLORIDE
  10. PREVACID [Concomitant]
     Active Substance: LANSOPRAZOLE
  11. SPIRONOLACTONE. [Concomitant]
     Active Substance: SPIRONOLACTONE
  12. ATACAND [Suspect]
     Active Substance: CANDESARTAN CILEXETIL
     Indication: BLOOD PRESSURE ABNORMAL
     Dosage: GENERIC
     Route: 065

REACTIONS (11)
  - Cerebrovascular accident [Unknown]
  - Drug intolerance [Unknown]
  - Cataract [Unknown]
  - Procedural complication [Unknown]
  - Visual impairment [Unknown]
  - Drug hypersensitivity [Unknown]
  - Malaise [Unknown]
  - Hypertension [Unknown]
  - Drug ineffective [Unknown]
  - Hypersensitivity [Unknown]
  - Arterial occlusive disease [Unknown]

NARRATIVE: CASE EVENT DATE: 2008
